FAERS Safety Report 9490335 (Version 3)
Quarter: 2013Q4

REPORT INFORMATION
  Report Type: Spontaneous
  Country: PT (occurrence: PT)
  Receive Date: 20130830
  Receipt Date: 20131211
  Transmission Date: 20140711
  Serious: Yes (Hospitalization)
  Sender: FDA-Public Use
  Company Number: PT-009507513-1308PRT013992

PATIENT
  Age: 83 Year
  Sex: Female

DRUGS (7)
  1. FOSAVANCE [Suspect]
     Indication: OSTEOPOROSIS
     Dosage: UNK
     Route: 048
     Dates: start: 201306
  2. DIPYRONE [Concomitant]
     Dosage: AS NEEDED
  3. TRAMAL [Concomitant]
     Dosage: SPORADICALLY
  4. BEN-U-RON [Concomitant]
     Indication: HEADACHE
     Route: 048
  5. NITROGLYCERIN [Concomitant]
  6. LEPICORTINOLO (PREDNISOLONE) [Concomitant]
  7. OMEPRAZOLE [Concomitant]

REACTIONS (3)
  - Haemolytic anaemia [Recovering/Resolving]
  - Transfusion [Recovering/Resolving]
  - Headache [Unknown]
